FAERS Safety Report 14007009 (Version 1)
Quarter: 2017Q3

REPORT INFORMATION
  Report Type: Spontaneous
  Country: US (occurrence: US)
  Receive Date: 20170925
  Receipt Date: 20170925
  Transmission Date: 20171128
  Serious: No
  Sender: FDA-Public Use
  Company Number: US-PFIZER INC-2017405596

PATIENT
  Age: 9 Year
  Sex: Male

DRUGS (3)
  1. GENOTROPIN MQ [Suspect]
     Active Substance: SOMATROPIN
     Indication: BODY HEIGHT BELOW NORMAL
  2. HYDROCORTISONE. [Concomitant]
     Active Substance: HYDROCORTISONE
     Dosage: UNK UNK, AS NEEDED (APPLY TO AFFECTED AREAS AS DIRECTED 2 TIMES DAILY)
  3. GENOTROPIN MQ [Suspect]
     Active Substance: SOMATROPIN
     Indication: BLOOD GROWTH HORMONE ABNORMAL
     Dosage: 1 MG, 1X/DAY (DAILY) (NIGHTLY)
     Route: 058
     Dates: start: 201408

REACTIONS (1)
  - Vein disorder [Unknown]
